FAERS Safety Report 24451403 (Version 1)
Quarter: 2024Q4

REPORT INFORMATION
  Report Type: Spontaneous
  Country: US (occurrence: US)
  Receive Date: 20241017
  Receipt Date: 20241017
  Transmission Date: 20250115
  Serious: Yes (Other)
  Sender: TAKEDA
  Company Number: US-TAKEDA-2024TUS102314

PATIENT
  Age: 66 Year
  Sex: Male

DRUGS (2)
  1. HUMAN IMMUNOGLOBULIN G [Suspect]
     Active Substance: HUMAN IMMUNOGLOBULIN G
     Indication: West Nile viral infection
     Dosage: UNK
     Route: 042
  2. BOTULISM ANTITOXIN NOS [Concomitant]
     Active Substance: BOTULISM ANTITOXIN
     Dosage: UNK
     Route: 065

REACTIONS (3)
  - West Nile viral infection [Unknown]
  - Central nervous system necrosis [Unknown]
  - Product use in unapproved indication [Unknown]
